FAERS Safety Report 24379152 (Version 1)
Quarter: 2024Q3

REPORT INFORMATION
  Report Type: Spontaneous
  Country: US (occurrence: US)
  Receive Date: 20240930
  Receipt Date: 20240930
  Transmission Date: 20241017
  Serious: Yes (Life-Threatening, Other)
  Sender: PFIZER
  Company Number: US-PFIZER INC-PV202400124895

PATIENT
  Age: 77 Year
  Sex: Female

DRUGS (3)
  1. RITUXIMAB [Suspect]
     Active Substance: RITUXIMAB
     Indication: Marginal zone lymphoma
     Dosage: (COMPLETED SIX COURSES OVER SIX MONTHS)
  2. RITUXIMAB [Suspect]
     Active Substance: RITUXIMAB
     Dosage: (MAINTENANCE INITIATED BUT DISCONTINUED AFTER ONE MONTH)
  3. BENDAMUSTINE HYDROCHLORIDE [Suspect]
     Active Substance: BENDAMUSTINE HYDROCHLORIDE
     Indication: Marginal zone lymphoma
     Dosage: (COMPLETED SIX COURSES OVER SIX MONTHS)

REACTIONS (1)
  - Pulmonary hypertension [Unknown]
